FAERS Safety Report 7270512-4 (Version None)
Quarter: 2010Q4

REPORT INFORMATION
  Report Type: 
  Country: None (occurrence: None)
  Receive Date: 20101130
  Receipt Date: 20100803
  Transmission Date: 20110411
  Serious: Yes (Hospitalization)
  Sender: FDA-Public Use
  Company Number: 2010SP042285

PATIENT
  Age: 19 Year
  Sex: Female
  Weight: 47.6277 kg

DRUGS (2)
  1. NUVARING [Suspect]
     Indication: CONTRACEPTION
     Dates: start: 20080601, end: 20080806
  2. NUVARING [Suspect]
     Indication: MENSTRUAL DISORDER
     Dates: start: 20080601, end: 20080806

REACTIONS (1)
  - PULMONARY EMBOLISM [None]
